FAERS Safety Report 24389593 (Version 3)
Quarter: 2024Q4

REPORT INFORMATION
  Report Type: Report from Study
  Country: US (occurrence: US)
  Receive Date: 20241003
  Receipt Date: 20241024
  Transmission Date: 20250115
  Serious: Yes (Hospitalization)
  Sender: JOHNSON AND JOHNSON
  Company Number: US-JNJFOC-20240873968

PATIENT
  Age: 41 Year
  Sex: Female
  Weight: 68.2 kg

DRUGS (5)
  1. MACITENTAN [Suspect]
     Active Substance: MACITENTAN
     Indication: Product used for unknown indication
     Route: 048
  2. SELEXIPAG [Suspect]
     Active Substance: SELEXIPAG
     Indication: Pulmonary arterial hypertension
     Route: 048
  3. SELEXIPAG [Suspect]
     Active Substance: SELEXIPAG
     Indication: Pulmonary hypertension
     Route: 048
  4. TADALAFIL [Concomitant]
     Active Substance: TADALAFIL
  5. OXYGEN [Concomitant]
     Active Substance: OXYGEN

REACTIONS (8)
  - Dyspnoea [Unknown]
  - Abdominal discomfort [Unknown]
  - Malaise [Unknown]
  - Pleural effusion [Unknown]
  - Dizziness [Unknown]
  - Hypokinesia [Unknown]
  - Amnesia [Unknown]
  - Blood pressure abnormal [Unknown]

NARRATIVE: CASE EVENT DATE: 20240922
